FAERS Safety Report 7402759-8 (Version None)
Quarter: 2011Q2

REPORT INFORMATION
  Report Type: 
  Country: None (occurrence: None)
  Receive Date: 20110408
  Receipt Date: 20110328
  Transmission Date: 20111010
  Serious: Yes (Death, Hospitalization)
  Sender: FDA-Public Use
  Company Number: GB-MEDIMMUNE-MEDI-0012279

PATIENT
  Sex: Male
  Weight: 7.2 kg

DRUGS (2)
  1. SYNAGIS [Suspect]
     Dates: start: 20101203, end: 20101203
  2. SYNAGIS [Suspect]
     Dates: start: 20101008, end: 20101105

REACTIONS (5)
  - STAPHYLOCOCCAL INFECTION [None]
  - OXYGEN CONSUMPTION INCREASED [None]
  - PARAINFLUENZAE VIRUS INFECTION [None]
  - PSEUDOMONAS INFECTION [None]
  - PNEUMONIA [None]
